FAERS Safety Report 19363074 (Version 1)
Quarter: 2021Q2

REPORT INFORMATION
  Report Type: Spontaneous
  Country: US (occurrence: US)
  Receive Date: 20210603
  Receipt Date: 20210603
  Transmission Date: 20210717
  Serious: Yes (Hospitalization, Other)
  Sender: FDA-Public Use
  Company Number: US-SA-2021SA180979

PATIENT
  Age: 86 Year
  Sex: Female

DRUGS (17)
  1. APIXABAN [Concomitant]
     Active Substance: APIXABAN
     Dosage: 2.5 MG, BID
  2. PROBIOTICS NOS [Concomitant]
     Active Substance: PROBIOTICS NOS
     Indication: ANTIBIOTIC PROPHYLAXIS
     Dosage: UNK
     Dates: start: 202004, end: 2020
  3. SIMETHICONE (DIMETHICONE) [Concomitant]
     Active Substance: DIMETHICONE
     Dosage: UNK UNK, TID
  4. PRESERVISION [Concomitant]
     Active Substance: MINERALS\VITAMINS
     Dosage: 2 DAILY
  5. DIPHENHYDRAMINE. [Interacting]
     Active Substance: DIPHENHYDRAMINE
     Dosage: 25 MG, HS
     Route: 048
     Dates: start: 202005, end: 202005
  6. METOPROLOL SUCCINATE. [Concomitant]
     Active Substance: METOPROLOL SUCCINATE
     Dosage: 50 MG, QD
     Dates: end: 202005
  7. TRAZODONE [Concomitant]
     Active Substance: TRAZODONE HYDROCHLORIDE
     Dosage: 50 MG; 2 DAILY
  8. ACETAMINOPHEN. [Concomitant]
     Active Substance: ACETAMINOPHEN
     Indication: PAIN
     Dosage: 650 MG (ER TABLET)
  9. LISINOPRIL. [Concomitant]
     Active Substance: LISINOPRIL
     Dosage: 5 MG, QD
     Dates: end: 202005
  10. DIPHENHYDRAMINE. [Suspect]
     Active Substance: DIPHENHYDRAMINE
     Dosage: 50 MG, HS
     Route: 048
     Dates: start: 202004, end: 202005
  11. MELATONIN [Concomitant]
     Active Substance: MELATONIN
     Dosage: CHANGED FROM A QUICK?DISSOLVE TABLET TO A CAPSULE
     Dates: start: 20200420
  12. PRAVASTATIN. [Concomitant]
     Active Substance: PRAVASTATIN
     Dosage: UNK
     Dates: end: 2020
  13. DONEPEZIL HYDROCHLORIDE. [Interacting]
     Active Substance: DONEPEZIL HYDROCHLORIDE
     Indication: DEMENTIA
     Dosage: 5 MG, QD
  14. MELATONIN [Concomitant]
     Active Substance: MELATONIN
     Dosage: 10 MG, HS (1 DAILY)
  15. LIDOCAINE. [Concomitant]
     Active Substance: LIDOCAINE
     Indication: PAIN
     Dosage: UNK
     Dates: start: 202004
  16. TRAMADOL. [Concomitant]
     Active Substance: TRAMADOL
     Indication: PAIN
     Dosage: 50 MG TABLETS BY MOUTH THREE TIMES DAILY AS NEEDED
     Route: 048
     Dates: start: 20200428
  17. LORATADINE. [Concomitant]
     Active Substance: LORATADINE
     Dosage: 10 MG, QD

REACTIONS (11)
  - Urinary retention [Recovering/Resolving]
  - Urinary tract infection bacterial [Recovering/Resolving]
  - Fall [Unknown]
  - Drug interaction [Unknown]
  - Decreased appetite [Unknown]
  - Sepsis [Recovering/Resolving]
  - Hypokalaemia [Recovering/Resolving]
  - Lethargy [Recovering/Resolving]
  - Hypotension [Recovering/Resolving]
  - Confusional state [Recovering/Resolving]
  - Cognitive disorder [Recovering/Resolving]

NARRATIVE: CASE EVENT DATE: 2020
